FAERS Safety Report 11349045 (Version 4)
Quarter: 2017Q4

REPORT INFORMATION
  Report Type: Spontaneous
  Country: BR (occurrence: BR)
  Receive Date: 20150807
  Receipt Date: 20171003
  Transmission Date: 20180320
  Serious: Yes (Hospitalization, Other)
  Sender: FDA-Public Use
  Company Number: BR-PFIZER INC-2015259730

PATIENT
  Age: 70 Year
  Sex: Female
  Weight: 57 kg

DRUGS (5)
  1. XALATAN [Suspect]
     Active Substance: LATANOPROST
     Dosage: UNK
     Dates: start: 2016
  2. XALATAN [Suspect]
     Active Substance: LATANOPROST
     Indication: GLAUCOMA
     Dosage: 2 GTT, ONCE A DAY (1 DROP IN EACH EYE, IN THE EVENING)
     Route: 047
     Dates: start: 2008, end: 2014
  3. AZOPT [Concomitant]
     Active Substance: BRINZOLAMIDE
     Dosage: UNK
     Dates: start: 2008
  4. SYSTANE (HYPROMELLOSE 2910 (4000 MPA.S)) [Concomitant]
     Active Substance: HYPROMELLOSE 2910 (4000 MPA.S)
     Dosage: UNK
  5. DIAMOX /00016901/ [Concomitant]
     Active Substance: ACETAZOLAMIDE
     Indication: KERATITIS
     Dosage: UNK
     Dates: start: 2008

REACTIONS (7)
  - Foot fracture [Recovered/Resolved]
  - Condition aggravated [Unknown]
  - Tibia fracture [Recovered/Resolved]
  - Pain [Not Recovered/Not Resolved]
  - Cataract [Unknown]
  - Fall [Recovered/Resolved]
  - Upper limb fracture [Recovered/Resolved]

NARRATIVE: CASE EVENT DATE: 2012
